FAERS Safety Report 7740612-0 (Version None)
Quarter: 2011Q3

REPORT INFORMATION
  Report Type: 
  Country: None (occurrence: None)
  Receive Date: 20110909
  Receipt Date: 20110831
  Transmission Date: 20111222
  Serious: Yes (Hospitalization)
  Sender: FDA-Public Use
  Company Number: ES-PFIZER INC-2011143085

PATIENT
  Age: 73 Year
  Sex: Female
  Weight: 50 kg

DRUGS (9)
  1. LESCOL [Concomitant]
     Indication: HYPERCHOLESTEROLAEMIA
     Dosage: 80 MG, 1X/DAY
     Route: 048
  2. PANTOPRAZOLE [Concomitant]
     Indication: PROPHYLAXIS
     Dosage: 40 MG, 1X/DAY
     Route: 048
  3. NOLOTIL /SPA/ [Concomitant]
     Indication: PAIN
     Dosage: 1500 MG, 1X/DAY
     Route: 048
  4. DEXAMETHASONE [Concomitant]
     Indication: PAIN
     Dosage: 2 MG, 1X/DAY
     Route: 048
  5. CRIZOTINIB [Suspect]
     Indication: NON-SMALL CELL LUNG CANCER
     Dosage: 250 MG, 2X/DAY
     Route: 048
     Dates: start: 20110512
  6. IBUPROFEN [Suspect]
     Indication: PAIN
     Dosage: 600 MG, 3X/DAY
     Route: 048
     Dates: end: 20110627
  7. TRAMADOL [Concomitant]
     Indication: PAIN
     Dosage: 50 MG, 1X/DAY
     Route: 048
  8. FOLIC ACID [Concomitant]
     Indication: PROPHYLAXIS
     Dosage: 5 MG, 1X/DAY
     Route: 048
  9. METFORMIN HCL [Concomitant]
     Indication: DIABETES MELLITUS
     Dosage: 1700 MG, 1X/DAY
     Route: 048

REACTIONS (2)
  - HYPOCALCAEMIA [None]
  - RENAL FAILURE ACUTE [None]
